FAERS Safety Report 12797016 (Version 1)
Quarter: 2016Q3

REPORT INFORMATION
  Report Type: Spontaneous
  Country: DE (occurrence: DE)
  Receive Date: 20160929
  Receipt Date: 20160929
  Transmission Date: 20161109
  Serious: Yes (Hospitalization)
  Sender: FDA-Public Use
  Company Number: DE-ALLERGAN-1670190US

PATIENT
  Age: 67 Year
  Sex: Female

DRUGS (2)
  1. ESCITALOPRAM OXALATE UNK [Suspect]
     Active Substance: ESCITALOPRAM OXALATE
     Indication: ANXIETY DISORDER
     Dosage: 5 MG, QD
     Route: 065
     Dates: end: 201606
  2. ESCITALOPRAM OXALATE UNK [Suspect]
     Active Substance: ESCITALOPRAM OXALATE
     Indication: DEPRESSION
     Dosage: 10 MG, QD
     Route: 065

REACTIONS (5)
  - Eructation [Unknown]
  - Post procedural haemorrhage [Unknown]
  - Procedural haemorrhage [Unknown]
  - Platelet disorder [Unknown]
  - Withdrawal syndrome [Unknown]
